FAERS Safety Report 16663543 (Version 1)
Quarter: 2019Q3

REPORT INFORMATION
  Report Type: Report from Study
  Country: US (occurrence: US)
  Receive Date: 20190802
  Receipt Date: 20190802
  Transmission Date: 20191004
  Serious: No
  Sender: FDA-Public Use
  Company Number: US-EXELIXIS-CABO-19020586

PATIENT
  Sex: Female

DRUGS (25)
  1. CABOMETYX [Suspect]
     Active Substance: CABOZANTINIB S-MALATE
     Indication: RENAL CANCER
     Dosage: 60 MG, QD (1 HOUR BEFORE OR 2 HOURS AFTER A MEAL)
     Route: 048
     Dates: start: 201803
  2. CALCIUM [Concomitant]
     Active Substance: CALCIUM
  3. POTASSIUM CHLORIDE. [Concomitant]
     Active Substance: POTASSIUM CHLORIDE
  4. CABOMETYX [Suspect]
     Active Substance: CABOZANTINIB S-MALATE
     Indication: URETERAL DISORDER
     Dosage: 40 MG, QD (1 HOUR BEFORE OR 2 HOURS AFTER A MEAL)40 MG, QD
     Route: 048
  5. FUROSEMIDE. [Concomitant]
     Active Substance: FUROSEMIDE
  6. CABOMETYX [Suspect]
     Active Substance: CABOZANTINIB S-MALATE
     Indication: RENAL DISORDER
     Dosage: 40 MG, QD (1 HOUR BEFORE OR 2 HOURS AFTER A MEAL)
     Route: 048
  7. METFORMIN HCL [Concomitant]
     Active Substance: METFORMIN HYDROCHLORIDE
  8. OMEPRAZOLE. [Concomitant]
     Active Substance: OMEPRAZOLE
  9. CABOMETYX [Suspect]
     Active Substance: CABOZANTINIB S-MALATE
     Dosage: 40 MG, QOD (ONE TABLET EVERY OTHERDAY 1 HOUR BEFOR OR 2 HOURS AFTER MEAL)
     Route: 048
  10. AMLODIPINE BESILATE [Concomitant]
     Active Substance: AMLODIPINE BESYLATE
  11. FLUOXETINE HCL [Concomitant]
     Active Substance: FLUOXETINE HYDROCHLORIDE
  12. INVEGA [Concomitant]
     Active Substance: PALIPERIDONE
  13. IRON [Concomitant]
     Active Substance: IRON
  14. LANTUS [Concomitant]
     Active Substance: INSULIN GLARGINE
  15. RAMIPRIL. [Concomitant]
     Active Substance: RAMIPRIL
  16. ROLAIDS [Concomitant]
     Active Substance: CALCIUM CARBONATE\MAGNESIUM HYDROXIDE
  17. PIOGLITAZONE. [Concomitant]
     Active Substance: PIOGLITAZONE
  18. SIMVASTATIN. [Concomitant]
     Active Substance: SIMVASTATIN
  19. VITAMINE C [Concomitant]
     Active Substance: ASCORBIC ACID
  20. VITAMIN D [Concomitant]
     Active Substance: VITAMIN D NOS
  21. MULTIVITAMINS, COMBINATIONS [Concomitant]
     Active Substance: VITAMINS
  22. PREDNISONE. [Concomitant]
     Active Substance: PREDNISONE
  23. QUETIAPINE FUMARAT [Concomitant]
     Active Substance: QUETIAPINE FUMARATE
  24. NOVOLOG [Concomitant]
     Active Substance: INSULIN ASPART
  25. TUMS CHEWIES [Concomitant]

REACTIONS (3)
  - Memory impairment [Not Recovered/Not Resolved]
  - Diarrhoea [Not Recovered/Not Resolved]
  - Headache [Not Recovered/Not Resolved]
